FAERS Safety Report 14843643 (Version 1)
Quarter: 2018Q2

REPORT INFORMATION
  Report Type: Spontaneous
  Country: CR (occurrence: CR)
  Receive Date: 20180503
  Receipt Date: 20180503
  Transmission Date: 20180711
  Serious: Yes (Other)
  Sender: FDA-Public Use
  Company Number: CR-PFIZER INC-2018176494

PATIENT
  Age: 47 Year
  Sex: Male

DRUGS (8)
  1. AMLODIPINE BESILATE [Suspect]
     Active Substance: AMLODIPINE BESYLATE
     Dosage: 5 MG, DAILY
  2. BENICAR [Concomitant]
     Active Substance: OLMESARTAN MEDOXOMIL
     Dosage: 40 MG, DAILY
  3. FAMOTIDINE. [Concomitant]
     Active Substance: FAMOTIDINE
     Dosage: 40 MG, DAILY (BEDTIME)
  4. CARVEDILOL. [Concomitant]
     Active Substance: CARVEDILOL
     Dosage: 12.5 MG, DAILY
  5. ISORDIL [Concomitant]
     Active Substance: ISOSORBIDE DINITRATE
     Dosage: 20 MG, 2X/DAY
  6. FUROSEMIDE. [Concomitant]
     Active Substance: FUROSEMIDE
     Dosage: 40 MG, 2X/DAY
  7. WARFARIN [Concomitant]
     Active Substance: WARFARIN
     Dosage: 5 MG, (1 TABLET ON MONDAYS, THURSDAYS AND SATURDAYS; 2 TABLETS ON FRIDAY AND SUNDAY)
  8. NPH /00030513/ [Concomitant]
     Dosage: 16 UNK
     Route: 058

REACTIONS (9)
  - Diastolic dysfunction [Unknown]
  - Monoparesis [Recovered/Resolved]
  - Systolic dysfunction [Unknown]
  - Cardiac ventricular thrombosis [Unknown]
  - Cerebral microangiopathy [Unknown]
  - Syncope [Recovered/Resolved]
  - Arthralgia [Recovered/Resolved]
  - Congestive cardiomyopathy [Unknown]
  - Pulmonary hypertension [Unknown]

NARRATIVE: CASE EVENT DATE: 20180326
